FAERS Safety Report 6017597-0 (Version None)
Quarter: 2008Q4

REPORT INFORMATION
  Report Type: 
  Country: None (occurrence: None)
  Receive Date: 20081223
  Receipt Date: 20081215
  Transmission Date: 20090506
  Serious: Yes (Hospitalization, Other)
  Sender: FDA-Public Use
  Company Number: US-BIOGENIDEC-2008BI024795

PATIENT
  Age: 60 Year
  Sex: Male

DRUGS (1)
  1. AVONEX [Suspect]
     Indication: MULTIPLE SCLEROSIS
     Route: 030
     Dates: start: 20021121

REACTIONS (8)
  - CEREBRAL HAEMORRHAGE [None]
  - FALL [None]
  - HEART RATE INCREASED [None]
  - HYDROCEPHALUS [None]
  - HYPERTENSION [None]
  - HYPOPHAGIA [None]
  - RENAL FAILURE [None]
  - VASCULAR INJURY [None]
